FAERS Safety Report 15864505 (Version 1)
Quarter: 2019Q1

REPORT INFORMATION
  Report Type: Spontaneous
  Country: US (occurrence: US)
  Receive Date: 20190124
  Receipt Date: 20190124
  Transmission Date: 20190417
  Serious: Yes (Hospitalization)
  Sender: FDA-Public Use
  Company Number: US-UNITED THERAPEUTICS-UNT-2019-001236

PATIENT
  Age: 75 Year
  Sex: Female

DRUGS (1)
  1. REMODULIN [Suspect]
     Active Substance: TREPROSTINIL
     Indication: PRODUCT USED FOR UNKNOWN INDICATION
     Dosage: 0.05 ?G/KG, CONTINUING
     Route: 041
     Dates: start: 20171006

REACTIONS (2)
  - Condition aggravated [Unknown]
  - Fluid overload [Unknown]

NARRATIVE: CASE EVENT DATE: 20190118
